FAERS Safety Report 4485323-2 (Version None)
Quarter: 2004Q4

REPORT INFORMATION
  Report Type: 
  Country: None (occurrence: None)
  Receive Date: 20041025
  Receipt Date: 20041025
  Transmission Date: 20050328
  Serious: No
  Sender: FDA-Public Use
  Company Number: None

PATIENT
  Sex: Female

DRUGS (2)
  1. OXYCODONE HCL [Suspect]
     Indication: BACK PAIN
     Dosage: 80 MG TWICE PO TID
     Route: 048
     Dates: start: 20030101, end: 20040101
  2. OXYCODONE HCL [Suspect]
     Indication: NECK PAIN
     Dosage: 80 MG TWICE PO TID
     Route: 048
     Dates: start: 20030101, end: 20040101

REACTIONS (2)
  - ANALGESIC DRUG LEVEL DECREASED [None]
  - PAIN [None]
